FAERS Safety Report 7827669-3 (Version None)
Quarter: 2011Q4

REPORT INFORMATION
  Report Type: 
  Country: None (occurrence: None)
  Receive Date: 20111020
  Receipt Date: 20111005
  Transmission Date: 20120403
  Serious: Yes (Hospitalization)
  Sender: FDA-Public Use
  Company Number: US-ROCHE-1003013

PATIENT
  Age: 63 Year
  Sex: Female

DRUGS (3)
  1. TEMOZOLOMIDE [Suspect]
     Dosage: 150 TO 200 MG/M2 ON DAY 1 AND 5.
     Route: 048
  2. TEMOZOLOMIDE [Suspect]
     Indication: GLIOBLASTOMA MULTIFORME
     Route: 048
     Dates: start: 20100930
  3. AVASTIN [Suspect]
     Indication: GLIOBLASTOMA MULTIFORME
     Dosage: OVER 30-90-MIN ON DAY 1 OF WKS 4 AND 6
     Route: 042
     Dates: start: 20100930

REACTIONS (1)
  - HAEMORRHAGE INTRACRANIAL [None]
